FAERS Safety Report 18341791 (Version 1)
Quarter: 2020Q4

REPORT INFORMATION
  Report Type: Spontaneous
  Country: US (occurrence: US)
  Receive Date: 20201005
  Receipt Date: 20201005
  Transmission Date: 20210113
  Serious: Yes (Other)
  Sender: FDA-Public Use
  Company Number: US-GLAND PHARMA LIMITED-2020US005717

PATIENT

DRUGS (5)
  1. PEMBROLIZUMAB. [Suspect]
     Active Substance: PEMBROLIZUMAB
     Indication: SARCOMA
     Dosage: 200 MG (INITIAL CYCLE FOR 21 DAYS)
     Route: 042
  2. PEMBROLIZUMAB. [Suspect]
     Active Substance: PEMBROLIZUMAB
     Dosage: CYCLE 7, TREATMENT CONTINUED FOR UP TO 2 YEARS
     Route: 042
  3. DOXORUBICIN HYDROCHLORIDE. [Suspect]
     Active Substance: DOXORUBICIN HYDROCHLORIDE
     Dosage: 75 MG/M2, Q3WEEKS (GIVEN PRIOR TO PEMBROLIZUMAB, SAME DAY, EVERY 3WEEKS, FOR UP TO 6 CYCLES)
     Route: 065
  4. PEMBROLIZUMAB. [Suspect]
     Active Substance: PEMBROLIZUMAB
     Dosage: CYCLE 2 ALONG WITH DOXORUBICIN EVERY 3WEEKS, FOR UP TO 6 CYCLES
     Route: 042
  5. DOXORUBICIN HYDROCHLORIDE. [Suspect]
     Active Substance: DOXORUBICIN HYDROCHLORIDE
     Indication: SARCOMA
     Dosage: 45 MG/M2, Q3WEEKS (GIVEN PRIOR TO PEMBROLIZUMAB, SAME DAY, EVERY 3WEEKS, FOR UP TO 6 CYCLES)
     Route: 065

REACTIONS (1)
  - Febrile neutropenia [Recovered/Resolved]
